FAERS Safety Report 12844437 (Version 1)
Quarter: 2016Q4

REPORT INFORMATION
  Report Type: Spontaneous
  Country: US (occurrence: US)
  Receive Date: 20161013
  Receipt Date: 20161013
  Transmission Date: 20170207
  Serious: No
  Sender: FDA-Public Use
  Company Number: US-ROCHE-1734417

PATIENT
  Age: 71 Year
  Sex: Male

DRUGS (4)
  1. ESBRIET [Suspect]
     Active Substance: PIRFENIDONE
     Indication: INTERSTITIAL LUNG DISEASE
     Dosage: STARTER
     Route: 048
     Dates: start: 20160323
  2. MELATONIN [Concomitant]
     Active Substance: MELATONIN
  3. OMEPRAZOLE. [Concomitant]
     Active Substance: OMEPRAZOLE
  4. IBUPROFEN. [Concomitant]
     Active Substance: IBUPROFEN

REACTIONS (4)
  - Chest pain [Unknown]
  - Pyrexia [Unknown]
  - Chills [Unknown]
  - Back pain [Unknown]

NARRATIVE: CASE EVENT DATE: 20160329
